FAERS Safety Report 6333252-1 (Version None)
Quarter: 2009Q3

REPORT INFORMATION
  Report Type: 
  Country: None (occurrence: None)
  Receive Date: 20090828
  Receipt Date: 20090814
  Transmission Date: 20100115
  Serious: Yes (Hospitalization)
  Sender: FDA-Public Use
  Company Number: JP-MYLANLABS-2009S1014631

PATIENT
  Age: 21 Year
  Sex: Female

DRUGS (4)
  1. RISPERIDONE [Suspect]
     Indication: AGITATION
     Route: 048
     Dates: start: 20031016, end: 20031023
  2. RISPERIDONE [Suspect]
     Indication: HALLUCINATION, AUDITORY
     Route: 048
     Dates: start: 20031016, end: 20031023
  3. RISPERIDONE [Suspect]
     Indication: SPEECH DISORDER
     Route: 048
     Dates: start: 20031016, end: 20031023
  4. RISPERIDONE [Suspect]
     Indication: INSOMNIA
     Route: 048
     Dates: start: 20031016, end: 20031023

REACTIONS (1)
  - CATATONIA [None]
